FAERS Safety Report 24539337 (Version 2)
Quarter: 2025Q3

REPORT INFORMATION
  Report Type: Other
  Country: US (occurrence: US)
  Receive Date: 20241023
  Receipt Date: 20250729
  Transmission Date: 20251021
  Serious: Yes (Life-Threatening, Hospitalization, Other)
  Sender: INNOGENIX, LLC
  Company Number: US-Innogenix, LLC-2163626

PATIENT
  Age: 45 Year
  Sex: Male

DRUGS (1)
  1. BACLOFEN [Suspect]
     Active Substance: BACLOFEN
     Indication: Multiple sclerosis

REACTIONS (21)
  - Cardiac arrest [Recovered/Resolved]
  - Device malfunction [Unknown]
  - Overdose [Unknown]
  - Confusional state [Recovered/Resolved]
  - Salivary hypersecretion [Recovered/Resolved]
  - Hyperhidrosis [Recovered/Resolved]
  - Muscle spasticity [Recovered/Resolved]
  - Rhonchi [Recovered/Resolved]
  - Sinus tachycardia [Recovered/Resolved]
  - Bradycardia [Recovered/Resolved]
  - Toxicity to various agents [Recovered/Resolved]
  - Tachypnoea [Recovered/Resolved]
  - Tachycardia [Recovered/Resolved]
  - Hypertension [Recovered/Resolved]
  - Mental status changes [Recovered/Resolved]
  - Cerebral atrophy [Recovered/Resolved]
  - Respiratory distress [Recovered/Resolved]
  - Ventricular tachycardia [Recovered/Resolved]
  - Pulseless electrical activity [Recovered/Resolved]
  - Respiratory acidosis [Recovered/Resolved]
  - Electrocardiogram QT prolonged [Recovered/Resolved]
